FAERS Safety Report 16947306 (Version 4)
Quarter: 2021Q1

REPORT INFORMATION
  Report Type: Report from Study
  Country: BR (occurrence: BR)
  Receive Date: 20191022
  Receipt Date: 20210106
  Transmission Date: 20210419
  Serious: Yes (Life-Threatening, Hospitalization, Other)
  Sender: FDA-Public Use
  Company Number: NVSC2019BR012740

PATIENT
  Age: 47 Year
  Sex: Male

DRUGS (4)
  1. COSENTYX [Suspect]
     Active Substance: SECUKINUMAB
     Dosage: 300 MG, UNKNOWN
     Route: 065
     Dates: start: 20190817
  2. COSENTYX [Suspect]
     Active Substance: SECUKINUMAB
     Dosage: 300 MG, UNKNOWN
     Route: 065
     Dates: start: 20190727
  3. COSENTYX [Suspect]
     Active Substance: SECUKINUMAB
     Indication: PSORIATIC ARTHROPATHY
     Dosage: 300 MG
     Route: 065
     Dates: start: 201901
  4. COSENTYX [Suspect]
     Active Substance: SECUKINUMAB
     Dosage: 300 MG, UNKNOWN
     Route: 065
     Dates: start: 20201024

REACTIONS (12)
  - Syncope [Recovering/Resolving]
  - Thrombosis [Recovering/Resolving]
  - Malaise [Recovering/Resolving]
  - Pulmonary embolism [Recovering/Resolving]
  - C-reactive protein increased [Unknown]
  - Inflammation [Unknown]
  - Head injury [Not Recovered/Not Resolved]
  - Feeling abnormal [Recovering/Resolving]
  - Injury [Not Recovered/Not Resolved]
  - Myocardial infarction [Recovered/Resolved]
  - Product prescribing error [Unknown]
  - Back injury [Not Recovered/Not Resolved]

NARRATIVE: CASE EVENT DATE: 20191014
